FAERS Safety Report 25240267 (Version 1)
Quarter: 2025Q2

REPORT INFORMATION
  Report Type: Spontaneous
  Country: US (occurrence: None)
  Receive Date: 20250425
  Receipt Date: 20250425
  Transmission Date: 20250717
  Serious: Yes (Hospitalization)
  Sender: FDA-CTU
  Company Number: None

PATIENT
  Sex: Female
  Weight: 60.75 kg

DRUGS (2)
  1. WINREVAIR [Suspect]
     Active Substance: SOTATERCEPT-CSRK
     Indication: Pulmonary arterial hypertension
     Route: 058
     Dates: start: 20240520
  2. TYVASO DPI [Suspect]
     Active Substance: TREPROSTINIL

REACTIONS (6)
  - Fall [None]
  - Vascular injury [None]
  - Fracture [None]
  - Therapy interrupted [None]
  - Fatigue [None]
  - Swelling [None]
